FAERS Safety Report 7137401-7 (Version None)
Quarter: 2010Q4

REPORT INFORMATION
  Report Type: 
  Country: None (occurrence: None)
  Receive Date: 20101206
  Receipt Date: 20101129
  Transmission Date: 20110411
  Serious: Yes (Hospitalization)
  Sender: FDA-Public Use
  Company Number: PHHO2010FR18080

PATIENT
  Sex: Male
  Weight: 86 kg

DRUGS (3)
  1. CERTICAN [Suspect]
     Indication: HEART TRANSPLANT
     Dosage: 1.5
     Route: 048
     Dates: start: 20091124
  2. NEORAL [Suspect]
     Indication: HEART TRANSPLANT
     Dosage: 20
     Route: 048
     Dates: start: 20090731
  3. PREDNISOLONE [Suspect]
     Indication: HEART TRANSPLANT
     Dosage: 5
     Route: 048
     Dates: start: 19871010

REACTIONS (2)
  - FLUID RETENTION [None]
  - HYPERNATRAEMIA [None]
